FAERS Safety Report 6620806-8 (Version None)
Quarter: 2010Q1

REPORT INFORMATION
  Report Type: 
  Country: None (occurrence: None)
  Receive Date: 20100309
  Receipt Date: 20091125
  Transmission Date: 20100710
  Serious: Yes (Hospitalization)
  Sender: FDA-Public Use
  Company Number: JP-SANOFI-AVENTIS-2009SA005784

PATIENT
  Age: 77 Year
  Sex: Male
  Weight: 52 kg

DRUGS (8)
  1. PLAVIX [Suspect]
     Indication: ANGINA UNSTABLE
     Route: 048
     Dates: start: 20080630, end: 20080630
  2. PLAVIX [Suspect]
     Dosage: TREATMENT WAS COMPLETED.
     Route: 048
     Dates: start: 20080701, end: 20090324
  3. ASPIRIN [Concomitant]
     Indication: ANGINA UNSTABLE
     Route: 048
     Dates: start: 20080630
  4. ROSUVASTATIN CALCIUM [Concomitant]
     Route: 048
     Dates: start: 20080630
  5. TAKEPRON [Concomitant]
     Route: 048
     Dates: start: 20080630, end: 20090114
  6. AMARYL [Concomitant]
     Route: 048
  7. VOGLIBOSE [Concomitant]
     Route: 048
     Dates: start: 20080728
  8. MAGLAX [Concomitant]
     Indication: CONSTIPATION
     Route: 048
     Dates: start: 20080728

REACTIONS (1)
  - IN-STENT CORONARY ARTERY RESTENOSIS [None]
